FAERS Safety Report 13618458 (Version 1)
Quarter: 2017Q2

REPORT INFORMATION
  Report Type: Spontaneous
  Country: US (occurrence: US)
  Receive Date: 20170606
  Receipt Date: 20170606
  Transmission Date: 20170830
  Serious: No
  Sender: FDA-Public Use
  Company Number: US-ABBVIE-16P-163-1718839-00

PATIENT
  Age: 78 Year
  Sex: Male

DRUGS (2)
  1. DRONABINOL. [Suspect]
     Active Substance: DRONABINOL
     Indication: DECREASED APPETITE
     Route: 048
     Dates: start: 20160823, end: 20160824
  2. DRONABINOL. [Suspect]
     Active Substance: DRONABINOL
     Indication: CHEMOTHERAPY

REACTIONS (2)
  - Abasia [Recovered/Resolved]
  - Dizziness [Recovered/Resolved]

NARRATIVE: CASE EVENT DATE: 20160824
